FAERS Safety Report 6252127-X (Version None)
Quarter: 2009Q2

REPORT INFORMATION
  Report Type: 
  Country: None (occurrence: None)
  Receive Date: 20090630
  Receipt Date: 20060712
  Transmission Date: 20091009
  Serious: Yes (Death)
  Sender: FDA-Public Use
  Company Number: US-ROCHE-639125

PATIENT
  Sex: Male

DRUGS (2)
  1. ENFUVIRTIDE [Suspect]
     Route: 065
     Dates: start: 20060413, end: 20060701
  2. KALETRA [Concomitant]
     Dates: start: 20060413, end: 20060701

REACTIONS (1)
  - DEATH [None]
